FAERS Safety Report 7754720-1 (Version None)
Quarter: 2011Q3

REPORT INFORMATION
  Report Type: 
  Country: None (occurrence: None)
  Receive Date: 20110915
  Receipt Date: 20110708
  Transmission Date: 20111222
  Serious: Yes (Death, Other)
  Sender: FDA-Public Use
  Company Number: PHHY2009JP36178

PATIENT
  Sex: Male
  Weight: 65 kg

DRUGS (5)
  1. PROGRAF [Concomitant]
     Dosage: 2 MG, UNK
     Route: 048
     Dates: start: 20090115, end: 20100320
  2. VFEND [Concomitant]
     Dosage: 200 MG, UNK
     Route: 048
     Dates: start: 20090115, end: 20100320
  3. EXJADE [Suspect]
     Indication: IRON OVERLOAD
     Dosage: 1000 MG, DAILY
     Route: 048
     Dates: start: 20091225, end: 20100320
  4. EXJADE [Suspect]
     Indication: ACUTE LEUKAEMIA
     Dosage: 500 MG, DAILY
     Route: 048
     Dates: start: 20090115, end: 20090715
  5. LANSOPRAZOLE [Concomitant]
     Dosage: 30 MG, UNK
     Route: 048
     Dates: start: 20090115, end: 20100320

REACTIONS (4)
  - WHITE BLOOD CELL COUNT DECREASED [None]
  - LYMPHOCYTE COUNT DECREASED [None]
  - PLATELET COUNT DECREASED [None]
  - GRAFT VERSUS HOST DISEASE [None]
